FAERS Safety Report 17999055 (Version 1)
Quarter: 2020Q3

REPORT INFORMATION
  Report Type: Spontaneous
  Country: US (occurrence: US)
  Receive Date: 20200708
  Receipt Date: 20200708
  Transmission Date: 20201103
  Serious: No
  Sender: FDA-Public Use
  Company Number: None

PATIENT
  Age: 68 Year
  Sex: Female

DRUGS (1)
  1. TEMOZOLMIDE CAP 100MG [Suspect]
     Active Substance: TEMOZOLOMIDE
     Route: 048
     Dates: start: 2020

REACTIONS (4)
  - Heart rate decreased [None]
  - Drug ineffective [None]
  - Incontinence [None]
  - Therapy cessation [None]

NARRATIVE: CASE EVENT DATE: 20200629
